FAERS Safety Report 14985435 (Version 1)
Quarter: 2018Q2

REPORT INFORMATION
  Report Type: Spontaneous
  Country: DE (occurrence: DE)
  Receive Date: 20180607
  Receipt Date: 20180607
  Transmission Date: 20180711
  Serious: Yes (Hospitalization)
  Sender: FDA-Public Use
  Company Number: DE-TEVA-2018-DE-902275

PATIENT
  Age: 68 Year
  Sex: Male

DRUGS (15)
  1. INSULIN LISPRO [Concomitant]
     Active Substance: INSULIN LISPRO
     Dosage: NACH SCHEMA
     Route: 065
  2. FUROSEMID [Concomitant]
     Active Substance: FUROSEMIDE
     Dosage: 2-1-0-0
     Route: 065
  3. DIGITOXIN [Suspect]
     Active Substance: DIGITOXIN
     Dosage: .07 MILLIGRAM DAILY; 1-0-0-0
     Route: 065
  4. TAMSULOSIN [Suspect]
     Active Substance: TAMSULOSIN
     Dosage: .4 MILLIGRAM DAILY;  1-0-0-0
     Route: 065
  5. RAMIPRIL. [Concomitant]
     Active Substance: RAMIPRIL
     Dosage: 1-0-1-0
     Route: 065
  6. METOPROLOL. [Suspect]
     Active Substance: METOPROLOL
     Dosage: 1-0-1-0
     Route: 065
  7. PANTOPRAZOL [Concomitant]
     Active Substance: PANTOPRAZOLE SODIUM
     Dosage: 40 MILLIGRAM DAILY; 1-0-0-0
     Route: 065
  8. FORMOTEROL [Concomitant]
     Active Substance: FORMOTEROL
     Dosage: 1-0-0-1
     Route: 065
  9. SIMVASTATIN. [Concomitant]
     Active Substance: SIMVASTATIN
     Dosage: 20 MILLIGRAM DAILY; 0-0-0-1
     Route: 065
  10. XIPAMIDE [Concomitant]
     Active Substance: XIPAMIDE
     Dosage: 10 MILLIGRAM DAILY;  1-0-0-0
     Route: 065
  11. TIOTROPIUM BROMIDE [Concomitant]
     Active Substance: TIOTROPIUM BROMIDE
     Dosage: 1-0-0-0
     Route: 065
  12. INSULIN DETEMIR [Concomitant]
     Active Substance: INSULIN DETEMIR
     Dosage: NACH SCHEMA
     Route: 065
  13. KALIUM [Concomitant]
     Active Substance: POTASSIUM CHLORIDE
     Dosage: 1-1-0-0
  14. PHENPROCOUMON [Concomitant]
     Active Substance: PHENPROCOUMON
     Dosage: NACH INR
     Route: 065
  15. DARIFENACIN. [Concomitant]
     Active Substance: DARIFENACIN
     Route: 065

REACTIONS (3)
  - Oedema peripheral [Unknown]
  - Contraindicated product administered [Unknown]
  - Dyspnoea [Unknown]
